FAERS Safety Report 4572561-3 (Version None)
Quarter: 2005Q1

REPORT INFORMATION
  Report Type: 
  Country: None (occurrence: None)
  Receive Date: 20050208
  Receipt Date: 20050127
  Transmission Date: 20050727
  Serious: Yes (Other)
  Sender: FDA-Public Use
  Company Number: US-JNJFOC-20050200302

PATIENT
  Sex: Male
  Weight: 75.75 kg

DRUGS (6)
  1. REMICADE [Suspect]
     Route: 042
  2. AZATHIOPRINE [Suspect]
  3. PENTASA [Concomitant]
  4. CALCIUM GLUCONATE [Concomitant]
  5. VITAMIN B-12 [Concomitant]
  6. PREDNISONE [Concomitant]

REACTIONS (2)
  - ANAL CANCER [None]
  - LEUKOPENIA [None]
